FAERS Safety Report 5474362-0 (Version None)
Quarter: 2007Q4

REPORT INFORMATION
  Report Type: 
  Country: None (occurrence: None)
  Receive Date: 20071002
  Receipt Date: 20071001
  Transmission Date: 20080405
  Serious: Yes (Death, Hospitalization)
  Sender: FDA-Public Use
  Company Number: PHNU2007DE03012

PATIENT
  Age: 4 Year
  Sex: Female

DRUGS (2)
  1. SANDIMMUNE [Suspect]
     Indication: COLITIS
     Route: 065
     Dates: start: 20070801
  2. VORICONAZOLE [Suspect]

REACTIONS (6)
  - ACCIDENTAL OVERDOSE [None]
  - ACUTE HEPATIC FAILURE [None]
  - DRUG INTERACTION [None]
  - DRUG TOXICITY [None]
  - HEPATIC FAILURE [None]
  - RENAL FAILURE [None]
